FAERS Safety Report 15464768 (Version 2)
Quarter: 2018Q4

REPORT INFORMATION
  Report Type: Spontaneous
  Country: ES (occurrence: ES)
  Receive Date: 20181004
  Receipt Date: 20181016
  Transmission Date: 20190204
  Serious: Yes (Other)
  Sender: FDA-Public Use
  Company Number: PHHY2018ES114512

PATIENT
  Age: 87 Year
  Sex: Male

DRUGS (1)
  1. ENTRESTO [Suspect]
     Active Substance: SACUBITRIL\VALSARTAN
     Indication: ISCHAEMIC CARDIOMYOPATHY
     Dosage: 1 DF, Q12H
     Route: 048
     Dates: start: 20180613, end: 20180720

REACTIONS (8)
  - Altered state of consciousness [Unknown]
  - Abnormal behaviour [Recovering/Resolving]
  - Disorientation [Recovering/Resolving]
  - Diarrhoea [Unknown]
  - Renal impairment [Unknown]
  - Blood creatinine increased [Recovering/Resolving]
  - Uraemic encephalopathy [Unknown]
  - Depression [Recovering/Resolving]

NARRATIVE: CASE EVENT DATE: 20180613
